FAERS Safety Report 10049093 (Version 2)
Quarter: 2014Q1

REPORT INFORMATION
  Report Type: Report from Study
  Country: FR (occurrence: FR)
  Receive Date: 20140331
  Receipt Date: 20140331
  Transmission Date: 20141002
  Serious: Yes (Hospitalization)
  Sender: FDA-Public Use
  Company Number: FR-ROCHE-GNE257442

PATIENT
  Age: 48 Year
  Sex: Female

DRUGS (4)
  1. SOMATROPIN [Suspect]
     Indication: GROWTH HORMONE DEFICIENCY
     Dosage: STRENGTH 10MG/2ML
     Route: 058
     Dates: start: 20070426
  2. LEVOTHYROX [Concomitant]
     Indication: HYPOPITUITARISM
     Route: 065
     Dates: start: 200702
  3. HYDROCORTISONE [Concomitant]
     Indication: HYPOPITUITARISM
     Dosage: 20 MG, UNK
     Route: 065
     Dates: start: 200702
  4. TAHOR [Concomitant]
     Indication: DYSLIPIDAEMIA
     Dosage: 10 MG, UNK
     Route: 065
     Dates: start: 20080222

REACTIONS (2)
  - Pituitary tumour [Not Recovered/Not Resolved]
  - Visual pathway disorder [Not Recovered/Not Resolved]
